FAERS Safety Report 4463515-6 (Version None)
Quarter: 2004Q3

REPORT INFORMATION
  Report Type: 
  Country: None (occurrence: None)
  Receive Date: 20040930
  Receipt Date: 20040817
  Transmission Date: 20050211
  Serious: Yes (Hospitalization)
  Sender: FDA-Public Use
  Company Number: RE-MERCK-0408FRA00029

PATIENT
  Age: 82 Year
  Sex: Female

DRUGS (7)
  1. FOSAMAX [Suspect]
     Indication: OSTEOPOROSIS
     Route: 048
     Dates: start: 20030709, end: 20040715
  2. FOSAMAX [Suspect]
     Route: 048
     Dates: start: 20040913
  3. ANALGESIC OR ANESTHETIC (UNSPECIFIED) [Concomitant]
     Indication: PAIN
     Route: 048
  4. CELECOXIB [Concomitant]
     Indication: OSTEOARTHRITIS
     Route: 048
  5. CHONDROITIN SULFATE SODIUM [Concomitant]
     Indication: OSTEOARTHRITIS
     Route: 048
  6. GINKGO BILOBA EXTRACT [Concomitant]
     Route: 048
  7. ZOLPIDEM TARTRATE [Concomitant]
     Indication: INSOMNIA
     Route: 048

REACTIONS (2)
  - HYPERPARATHYROIDISM PRIMARY [None]
  - MASS [None]
